FAERS Safety Report 25970482 (Version 1)
Quarter: 2025Q4

REPORT INFORMATION
  Report Type: Spontaneous
  Country: US (occurrence: US)
  Receive Date: 20251028
  Receipt Date: 20251028
  Transmission Date: 20260117
  Serious: No
  Sender: BIOVITRUM
  Company Number: US-BIOVITRUM-2025-US-014090

PATIENT
  Age: 35 Year
  Sex: Female

DRUGS (2)
  1. DOPTELET [Suspect]
     Active Substance: AVATROMBOPAG MALEATE
     Indication: Immune thrombocytopenia
     Dosage: ONCE DAILY
     Route: 048
     Dates: start: 20250917
  2. DOPTELET [Suspect]
     Active Substance: AVATROMBOPAG MALEATE
     Dosage: 3 TIMES WEEKLY
     Route: 048

REACTIONS (2)
  - Platelet count increased [Recovered/Resolved]
  - Platelet count decreased [Unknown]
